FAERS Safety Report 15204774 (Version 1)
Quarter: 2018Q3

REPORT INFORMATION
  Report Type: Spontaneous
  Country: IT (occurrence: IT)
  Receive Date: 20180726
  Receipt Date: 20180726
  Transmission Date: 20181010
  Serious: Yes (Hospitalization)
  Sender: FDA-Public Use
  Company Number: IT-009507513-1807ITA010501

PATIENT
  Age: 67 Year
  Sex: Female
  Weight: 60 kg

DRUGS (5)
  1. KEPPRA [Concomitant]
     Active Substance: LEVETIRACETAM
  2. OMEPRAZOLE. [Concomitant]
     Active Substance: OMEPRAZOLE
     Dosage: 20 MG, QD
  3. PEMBROLIZUMAB. [Suspect]
     Active Substance: PEMBROLIZUMAB
     Indication: LUNG ADENOCARCINOMA
     Dosage: 120 MG
     Route: 041
     Dates: start: 20170829, end: 20180608
  4. TAPAZOLE [Concomitant]
     Active Substance: METHIMAZOLE
  5. SOLDESAM [Concomitant]
     Active Substance: DEXAMETHASONE
     Dosage: 8 GTT, QD

REACTIONS (3)
  - Alanine aminotransferase increased [Recovering/Resolving]
  - Cholestasis [Recovering/Resolving]
  - Necrosis [Recovering/Resolving]

NARRATIVE: CASE EVENT DATE: 20180622
